FAERS Safety Report 5613890-1 (Version None)
Quarter: 2008Q1

REPORT INFORMATION
  Report Type: 
  Country: None (occurrence: None)
  Receive Date: 20080205
  Receipt Date: 20080123
  Transmission Date: 20080703
  Serious: Yes (Hospitalization)
  Sender: FDA-Public Use
  Company Number: US-ELI_LILLY_AND_COMPANY-US200801004883

PATIENT
  Age: 76 Year
  Sex: Male

DRUGS (5)
  1. CYMBALTA [Suspect]
     Dosage: 30 MG, UNK
  2. PRILOSEC [Concomitant]
  3. FUROSEMIDE [Concomitant]
  4. TIZANIDINE HCL [Concomitant]
  5. CLARITIN [Concomitant]

REACTIONS (4)
  - CARDIAC FAILURE [None]
  - HOSPITALISATION [None]
  - NEOPLASM MALIGNANT [None]
  - PHARMACEUTICAL PRODUCT COMPLAINT [None]
